FAERS Safety Report 8331921-5 (Version None)
Quarter: 2012Q2

REPORT INFORMATION
  Report Type: 
  Country: None (occurrence: None)
  Receive Date: 20120502
  Receipt Date: 20120420
  Transmission Date: 20120825
  Serious: Yes (Hospitalization, Disabling, Other)
  Sender: FDA-Public Use
  Company Number: US-ELI_LILLY_AND_COMPANY-US201106004731

PATIENT
  Sex: Female
  Weight: 65 kg

DRUGS (18)
  1. FORTEO [Suspect]
     Dosage: 20 UG, QD
     Route: 065
  2. PREDNISONE [Concomitant]
  3. FOLIC ACID [Concomitant]
  4. HUMIRA [Concomitant]
  5. IRON [Concomitant]
  6. METHOTREXATE [Concomitant]
  7. RELAFEN [Concomitant]
  8. ACIPHEX [Concomitant]
  9. MIRAPEX [Concomitant]
  10. FELSOL                             /00117801/ [Concomitant]
  11. FORTEO [Suspect]
     Dosage: 20 UG, QD
     Route: 065
  12. CALCIUM [Concomitant]
  13. PLAQUENIL [Concomitant]
  14. PROZAC [Concomitant]
  15. TRAVATAN [Concomitant]
  16. FORTEO [Suspect]
     Indication: OSTEOPOROSIS
     Dosage: 20 UG, QD
     Route: 065
     Dates: start: 20110217
  17. FORTEO [Suspect]
     Dosage: 20 UG, QD
     Route: 065
  18. FORTEO [Suspect]
     Dosage: 20 UG, QD
     Route: 065

REACTIONS (18)
  - PAIN IN EXTREMITY [None]
  - FEAR [None]
  - FEELING ABNORMAL [None]
  - ARTHRALGIA [None]
  - HIP ARTHROPLASTY [None]
  - PAIN [None]
  - ARTHROPATHY [None]
  - MOVEMENT DISORDER [None]
  - BACK PAIN [None]
  - BONE DISORDER [None]
  - MUSCULOSKELETAL PAIN [None]
  - SPINAL FUSION SURGERY [None]
  - HIP FRACTURE [None]
  - NERVE INJURY [None]
  - ARTHRITIS [None]
  - POST PROCEDURAL COMPLICATION [None]
  - DEVICE DISLOCATION [None]
  - GROIN PAIN [None]
